FAERS Safety Report 21856224 (Version 4)
Quarter: 2023Q4

REPORT INFORMATION
  Report Type: Spontaneous
  Country: CN (occurrence: CN)
  Receive Date: 20230112
  Receipt Date: 20231222
  Transmission Date: 20240110
  Serious: Yes (Death, Hospitalization, Other)
  Sender: FDA-Public Use
  Company Number: CN-009507513-2301CHN002923

PATIENT
  Age: 50 Year
  Sex: Male

DRUGS (3)
  1. KEYTRUDA [Suspect]
     Active Substance: PEMBROLIZUMAB
     Indication: Lung neoplasm malignant
     Dosage: 200 MILLIGRAM
     Dates: start: 20221127, end: 20221127
  2. GEMCITABINE [Suspect]
     Active Substance: GEMCITABINE
     Indication: Lung neoplasm malignant
     Dosage: 1.6 G, D1, Q3W
     Dates: start: 20221125
  3. CISPLATIN [Suspect]
     Active Substance: CISPLATIN
     Indication: Lung neoplasm malignant
     Dosage: 120 MG, D1, Q3W
     Dates: start: 20221125

REACTIONS (21)
  - Septic shock [Fatal]
  - Sepsis [Fatal]
  - Nasopharyngeal cancer [Unknown]
  - Pleural effusion [Unknown]
  - Malignant neoplasm progression [Unknown]
  - Renal failure [Unknown]
  - Pneumonia [Unknown]
  - Hepatic failure [Unknown]
  - Cardiac failure [Unknown]
  - Arrhythmia [Unknown]
  - Atrial fibrillation [Unknown]
  - Helicobacter test positive [Unknown]
  - Chronic gastritis [Unknown]
  - Coagulopathy [Unknown]
  - Respiratory alkalosis [Unknown]
  - Metabolic acidosis [Unknown]
  - Platelet count decreased [Unknown]
  - Musculoskeletal stiffness [Unknown]
  - Myalgia [Unknown]
  - Product prescribing issue [Unknown]
  - Product use issue [Unknown]

NARRATIVE: CASE EVENT DATE: 20220101
